FAERS Safety Report 9679114 (Version 1)
Quarter: 2013Q4

REPORT INFORMATION
  Report Type: Spontaneous
  Country: US (occurrence: US)
  Receive Date: 20131108
  Receipt Date: 20131108
  Transmission Date: 20140711
  Serious: No
  Sender: FDA-Public Use
  Company Number: US-009507513-1311USA001569

PATIENT
  Age: 16 Year
  Sex: Female

DRUGS (2)
  1. IMPLANON [Suspect]
     Indication: CONTRACEPTION
     Dosage: LEFT INNER ARM
     Dates: start: 201212
  2. LEXAPRO [Concomitant]

REACTIONS (1)
  - Oligomenorrhoea [Unknown]
